FAERS Safety Report 8349830-4 (Version None)
Quarter: 2012Q2

REPORT INFORMATION
  Report Type: 
  Country: None (occurrence: None)
  Receive Date: 20120510
  Receipt Date: 20120501
  Transmission Date: 20120825
  Serious: Yes (Hospitalization)
  Sender: FDA-Public Use
  Company Number: US-JNJFOC-20120210278

PATIENT
  Sex: Female
  Weight: 78.93 kg

DRUGS (19)
  1. HUMALOG [Concomitant]
     Indication: DIABETES MELLITUS
     Route: 065
  2. DIOVAN [Concomitant]
     Route: 048
  3. BARBITAL [Concomitant]
     Indication: MIGRAINE
     Route: 048
  4. DIAZEPAM [Concomitant]
     Indication: MENIERE'S DISEASE
     Route: 048
  5. ROPINIROLE [Concomitant]
     Indication: RESTLESS LEGS SYNDROME
     Route: 048
  6. PRILOSEC [Concomitant]
     Indication: GASTROOESOPHAGEAL REFLUX DISEASE
     Route: 065
  7. CLOTRIMAZOLE [Concomitant]
     Route: 048
  8. DIPYRIDAMOLE [Concomitant]
     Indication: MENIERE'S DISEASE
     Route: 048
  9. PROVIGIL [Concomitant]
     Indication: MENIERE'S DISEASE
     Route: 048
  10. FUROSEMIDE [Concomitant]
     Indication: DIURETIC THERAPY
     Route: 048
  11. TRAMADOL HYDROCHLORIDE [Concomitant]
     Indication: RHEUMATOID ARTHRITIS
     Route: 048
  12. SPIRONOLACTONE [Concomitant]
     Indication: LIVER DISORDER
     Route: 048
  13. AMBIEN [Concomitant]
     Indication: SLEEP APNOEA SYNDROME
     Route: 048
  14. AMITRIPTYLINE HCL [Concomitant]
     Indication: MIGRAINE
     Route: 048
  15. CITALOPRAM HYDROBROMIDE [Concomitant]
     Indication: HEPATIC CIRRHOSIS
     Route: 048
  16. REMICADE [Suspect]
     Indication: RHEUMATOID ARTHRITIS
     Route: 042
     Dates: start: 20111201
  17. LEXAPRO [Concomitant]
     Indication: MENIERE'S DISEASE
     Route: 048
  18. DEXEDRINE [Concomitant]
     Indication: SLEEP APNOEA SYNDROME
     Route: 048
  19. LANTUS [Concomitant]
     Indication: DIABETES MELLITUS
     Route: 065

REACTIONS (4)
  - INFUSION RELATED REACTION [None]
  - PRURITUS [None]
  - RASH MACULAR [None]
  - BLOOD POTASSIUM INCREASED [None]
